FAERS Safety Report 9258552 (Version 2)
Quarter: 2014Q1

REPORT INFORMATION
  Report Type: Spontaneous
  Country: US (occurrence: None)
  Receive Date: 20121212
  Receipt Date: 20130314
  Transmission Date: 20141002
  Serious: No
  Sender: FDA-Public Use
  Company Number: 1210USA012307

PATIENT
  Age: 47 Year
  Sex: Male
  Weight: 81.6 kg

DRUGS (4)
  1. VICTRELIS [Suspect]
     Route: 048
  2. PEGASYS [Suspect]
     Dosage: 180 MICROGRAM PER M
  3. RIBAVIRIN [Suspect]
  4. LISINOPIL (LISINOPRIL) [Concomitant]

REACTIONS (6)
  - Urinary retention [None]
  - Thirst [None]
  - Dysgeusia [None]
  - Pollakiuria [None]
  - Weight increased [None]
  - Anaemia [None]
